FAERS Safety Report 4354696-3 (Version None)
Quarter: 2004Q2

REPORT INFORMATION
  Report Type: 
  Country: None (occurrence: None)
  Receive Date: 20040503
  Receipt Date: 20040427
  Transmission Date: 20050107
  Serious: Yes (Death)
  Sender: FDA-Public Use
  Company Number: USA-2003-0006066

PATIENT
  Sex: Male

DRUGS (1)
  1. OXYCONTIN [Suspect]

REACTIONS (3)
  - LUNG DISORDER [None]
  - OVERDOSE [None]
  - SELF-MEDICATION [None]
